FAERS Safety Report 6087705-4 (Version None)
Quarter: 2009Q1

REPORT INFORMATION
  Report Type: 
  Country: None (occurrence: None)
  Receive Date: 20090223
  Receipt Date: 20090211
  Transmission Date: 20090719
  Serious: Yes (Life-Threatening, Hospitalization)
  Sender: FDA-Public Use
  Company Number: CH-ROCHE-608071

PATIENT
  Sex: Male
  Weight: 98 kg

DRUGS (2)
  1. XELODA [Suspect]
     Route: 048
  2. XELODA [Suspect]
     Route: 048
     Dates: start: 20081210, end: 20081223

REACTIONS (8)
  - BLOOD DISORDER [None]
  - DIARRHOEA [None]
  - NEUTROPENIA [None]
  - OESOPHAGITIS [None]
  - SEPSIS [None]
  - SKIN DISORDER [None]
  - SKIN EXFOLIATION [None]
  - STOMATITIS [None]
